FAERS Safety Report 9463614 (Version 2)
Quarter: 2013Q3

REPORT INFORMATION
  Report Type: Spontaneous
  Country: JP (occurrence: JP)
  Receive Date: 20130819
  Receipt Date: 20130819
  Transmission Date: 20140515
  Serious: Yes (Death)
  Sender: FDA-Public Use
  Company Number: JP-ELI_LILLY_AND_COMPANY-JP201209000042

PATIENT
  Age: 82 Year
  Sex: Female
  Weight: 49 kg

DRUGS (24)
  1. ADCIRCA [Suspect]
     Indication: PULMONARY ARTERIAL HYPERTENSION
     Dosage: 2 MG, UNK
     Route: 048
     Dates: start: 20100315, end: 20100412
  2. ADCIRCA [Suspect]
     Dosage: 4 MG, UNK
     Route: 048
     Dates: start: 20100413, end: 20100419
  3. ADCIRCA [Suspect]
     Dosage: 6 MG, UNK
     Route: 048
     Dates: start: 20100420, end: 20100426
  4. ADCIRCA [Suspect]
     Dosage: 8 MG, UNK
     Route: 048
     Dates: start: 20100427, end: 20100510
  5. ADCIRCA [Suspect]
     Dosage: 16 MG, UNK
     Route: 048
     Dates: start: 20100511, end: 20100524
  6. ADCIRCA [Suspect]
     Dosage: 20 MG, UNK
     Route: 048
     Dates: start: 20100525, end: 20100621
  7. ADCIRCA [Suspect]
     Dosage: 30 MG, UNK
     Route: 048
     Dates: start: 20100622, end: 20100721
  8. ADCIRCA [Suspect]
     Dosage: 40 MG, UNK
     Route: 048
     Dates: start: 20100722
  9. PYDOXAL [Concomitant]
     Indication: STOMATITIS
     Dosage: 60 MG, UNK
     Route: 048
  10. HIBON [Concomitant]
     Indication: STOMATITIS
     Dosage: 40 MG, UNK
     Route: 048
  11. FERRUM                             /00023505/ [Concomitant]
     Indication: IRON DEFICIENCY ANAEMIA
     Dosage: 100 MG, UNK
     Route: 048
  12. MAGNESIUM OXIDE [Concomitant]
     Indication: CONSTIPATION
     Dosage: 1 G, UNK
     Route: 048
  13. DOMPERIDONE [Concomitant]
     Indication: VOMITING
     Dosage: 30 MG, UNK
     Route: 048
  14. HEMONASE [Concomitant]
     Indication: HAEMORRHOIDS
     Dosage: 3 DF, UNK
     Route: 048
  15. MUCOSTA [Concomitant]
     Indication: GASTRITIS
     Dosage: 300 MG, UNK
     Route: 048
  16. ALDACTONE                          /00006201/ [Concomitant]
     Indication: PULMONARY ARTERIAL HYPERTENSION
     Dosage: 25 MG, UNK
     Route: 048
  17. ANTOBRON [Concomitant]
     Indication: PROPHYLAXIS
     Dosage: 45 MG, UNK
     Route: 048
  18. TAKEPRON [Concomitant]
     Indication: PROPHYLAXIS
     Dosage: 15 MG, UNK
     Route: 048
  19. LANDSEN [Concomitant]
     Indication: MUSCLE SPASMS
     Dosage: 0.5 MG, UNK
     Route: 048
  20. ZYRTEC [Concomitant]
     Indication: RHINITIS ALLERGIC
     Dosage: 10 MG, UNK
     Route: 048
  21. ZADITEN                            /00495202/ [Concomitant]
     Indication: RHINITIS ALLERGIC
     Dosage: 0.3 MG, UNK
     Route: 045
  22. BERAPROST [Concomitant]
     Indication: PULMONARY ARTERIAL HYPERTENSION
     Dosage: 360 MG, UNK
     Route: 048
     Dates: start: 20081216
  23. TRACLEER [Concomitant]
     Indication: PULMONARY ARTERIAL HYPERTENSION
     Dosage: 250 MG, UNK
     Route: 048
     Dates: start: 20051214
  24. OXYGEN [Concomitant]
     Indication: PULMONARY ARTERIAL HYPERTENSION
     Dosage: UNK
     Dates: start: 20031218

REACTIONS (1)
  - Multi-organ failure [Fatal]
